FAERS Safety Report 11061345 (Version 2)
Quarter: 2015Q4

REPORT INFORMATION
  Report Type: Spontaneous
  Country: AU (occurrence: AU)
  Receive Date: 20150424
  Receipt Date: 20151030
  Transmission Date: 20160304
  Serious: Yes (Hospitalization, Other)
  Sender: FDA-Public Use
  Company Number: AU-ACTELION-A-CH2015-116291

PATIENT
  Sex: Male

DRUGS (11)
  1. OPSUMIT [Suspect]
     Active Substance: MACITENTAN
     Indication: PULMONARY ARTERIAL HYPERTENSION
     Route: 048
  2. RAMIPRIL. [Concomitant]
     Active Substance: RAMIPRIL
  3. TIOTROPIUM [Concomitant]
     Active Substance: TIOTROPIUM
  4. ALLOPURINOL. [Concomitant]
     Active Substance: ALLOPURINOL
  5. FUROSEMIDE. [Concomitant]
     Active Substance: FUROSEMIDE
  6. ASPIRIN. [Concomitant]
     Active Substance: ASPIRIN
  7. SALBUTAMOL [Concomitant]
     Active Substance: ALBUTEROL
  8. COLECALCIFEROL [Concomitant]
     Active Substance: CHOLECALCIFEROL
  9. THIAMINE. [Concomitant]
     Active Substance: THIAMINE
  10. DOXYCYCLINE. [Concomitant]
     Active Substance: DOXYCYCLINE
  11. DIGOXIN. [Concomitant]
     Active Substance: DIGOXIN

REACTIONS (13)
  - Chills [Unknown]
  - Hyperbilirubinaemia [Unknown]
  - Abdominal pain upper [Unknown]
  - Jaundice [Unknown]
  - Gamma-glutamyltransferase increased [Unknown]
  - Cyanosis [Unknown]
  - Dyspnoea [Unknown]
  - Pleural effusion [Recovering/Resolving]
  - Brain natriuretic peptide increased [Unknown]
  - Cholestasis [Unknown]
  - Pericardial effusion [Recovering/Resolving]
  - Blood folate decreased [Unknown]
  - Pyrexia [Unknown]
